FAERS Safety Report 19809934 (Version 1)
Quarter: 2021Q3

REPORT INFORMATION
  Report Type: Spontaneous
  Country: US (occurrence: US)
  Receive Date: 20210909
  Receipt Date: 20210909
  Transmission Date: 20211014
  Serious: Yes (Hospitalization, Other)
  Sender: FDA-Public Use
  Company Number: US-ABBVIE-21K-163-4070763-00

PATIENT
  Age: 69 Year
  Sex: Female
  Weight: 79.9 kg

DRUGS (2)
  1. PANCRELIPASE. [Suspect]
     Active Substance: PANCRELIPASE
     Indication: PRODUCT USED FOR UNKNOWN INDICATION
     Route: 065
  2. CREON [Suspect]
     Active Substance: PANCRELIPASE AMYLASE\PANCRELIPASE LIPASE\PANCRELIPASE PROTEASE
     Indication: GASTRIC DISORDER
     Dosage: 2 PILLS WITH EACH MEAL AND ONE IF EATING SOMETHING WRONG
     Route: 048

REACTIONS (4)
  - Fall [Recovered/Resolved]
  - Head discomfort [Recovered/Resolved]
  - Fibula fracture [Recovered/Resolved]
  - Atrial fibrillation [Not Recovered/Not Resolved]

NARRATIVE: CASE EVENT DATE: 20210721
